FAERS Safety Report 19441673 (Version 1)
Quarter: 2021Q2

REPORT INFORMATION
  Report Type: Spontaneous
  Country: US (occurrence: US)
  Receive Date: 20210621
  Receipt Date: 20210621
  Transmission Date: 20210717
  Serious: Yes (Other)
  Sender: FDA-Public Use
  Company Number: US-HIKMA PHARMACEUTICALS USA INC.-US-H14001-21-54659

PATIENT
  Age: 69 Year
  Sex: Male

DRUGS (9)
  1. GABAPENTIN. [Suspect]
     Active Substance: GABAPENTIN
     Dosage: MORNING
     Route: 065
     Dates: end: 201807
  2. PRAMIPEXOLE. [Concomitant]
     Active Substance: PRAMIPEXOLE
     Indication: BIPOLAR DISORDER
     Route: 065
     Dates: end: 201707
  3. LAMOTRIGINE. [Concomitant]
     Active Substance: LAMOTRIGINE
     Dosage: PM
     Route: 065
     Dates: start: 201803
  4. GABAPENTIN. [Suspect]
     Active Substance: GABAPENTIN
     Indication: BIPOLAR DISORDER
     Dosage: BEDTIME
     Route: 065
     Dates: end: 201611
  5. LAMOTRIGINE. [Concomitant]
     Active Substance: LAMOTRIGINE
     Indication: BIPOLAR DISORDER
     Route: 065
     Dates: end: 201802
  6. LAMOTRIGINE. [Concomitant]
     Active Substance: LAMOTRIGINE
     Dosage: AM
     Route: 065
     Dates: start: 201803
  7. GABAPENTIN. [Suspect]
     Active Substance: GABAPENTIN
     Dosage: BEDTIME
     Route: 065
     Dates: end: 201808
  8. OLANZAPINE. [Suspect]
     Active Substance: OLANZAPINE
     Indication: BIPOLAR DISORDER
     Dosage: UNKNOWN
     Route: 065
     Dates: start: 201612, end: 201701
  9. QUETIAPINE. [Suspect]
     Active Substance: QUETIAPINE
     Indication: BIPOLAR DISORDER
     Dosage: UNKNOWN
     Route: 065
     Dates: start: 201612, end: 201701

REACTIONS (4)
  - Restless legs syndrome [Recovering/Resolving]
  - Self-medication [Recovering/Resolving]
  - Condition aggravated [Recovering/Resolving]
  - Intentional product misuse [Recovering/Resolving]

NARRATIVE: CASE EVENT DATE: 201701
